FAERS Safety Report 14598226 (Version 4)
Quarter: 2018Q2

REPORT INFORMATION
  Report Type: Report from Study
  Country: GB (occurrence: GB)
  Receive Date: 20180305
  Receipt Date: 20180412
  Transmission Date: 20180711
  Serious: Yes (Death, Life-Threatening, Hospitalization, Disabling)
  Sender: FDA-Public Use
  Company Number: GB-ROCHE-2083869

PATIENT
  Age: 76 Year
  Sex: Male
  Weight: 86 kg

DRUGS (2)
  1. AMLODIPINE [Concomitant]
     Active Substance: AMLODIPINE BESYLATE
     Indication: PRODUCT USED FOR UNKNOWN INDICATION
     Route: 065
     Dates: start: 20150901
  2. TENECTEPLASE [Suspect]
     Active Substance: TENECTEPLASE
     Indication: ISCHAEMIC STROKE
     Dosage: TO A MAXIMUM OF 25 MG/KG
     Route: 042
     Dates: start: 20180216

REACTIONS (3)
  - Pneumonia [Fatal]
  - Post procedural haemorrhage [Not Recovered/Not Resolved]
  - Neurological decompensation [Unknown]

NARRATIVE: CASE EVENT DATE: 20180216
